FAERS Safety Report 11315898 (Version 4)
Quarter: 2018Q2

REPORT INFORMATION
  Report Type: Report from Study
  Country: JP (occurrence: JP)
  Receive Date: 20150728
  Receipt Date: 20180406
  Transmission Date: 20180711
  Serious: Yes (Death, Life-Threatening, Other)
  Sender: FDA-Public Use
  Company Number: JP-ROCHE-1612921

PATIENT
  Age: 72 Year
  Sex: Male

DRUGS (3)
  1. CARBOPLATIN. [Suspect]
     Active Substance: CARBOPLATIN
     Indication: NON-SMALL CELL LUNG CANCER METASTATIC
     Route: 041
     Dates: start: 20150708, end: 20150708
  2. BEVACIZUMAB. [Suspect]
     Active Substance: BEVACIZUMAB
     Indication: NON-SMALL CELL LUNG CANCER METASTATIC
     Route: 041
     Dates: start: 20150708, end: 20150708
  3. PACLITAXEL. [Suspect]
     Active Substance: PACLITAXEL
     Indication: NON-SMALL CELL LUNG CANCER METASTATIC
     Route: 041
     Dates: start: 20150708, end: 20150708

REACTIONS (13)
  - Disseminated intravascular coagulation [Fatal]
  - Hyponatraemia [Recovered/Resolved]
  - Retroperitonitis [Unknown]
  - White blood cell count decreased [Not Recovered/Not Resolved]
  - Azotaemia [Not Recovered/Not Resolved]
  - Abdominal wall disorder [Unknown]
  - Enterocolitis [Fatal]
  - Febrile neutropenia [Recovered/Resolved with Sequelae]
  - Ileus [Unknown]
  - Ileus paralytic [Unknown]
  - Diverticulitis [Unknown]
  - Constipation [Not Recovered/Not Resolved]
  - Septic shock [Fatal]

NARRATIVE: CASE EVENT DATE: 20150715
